FAERS Safety Report 4496355-2 (Version None)
Quarter: 2004Q4

REPORT INFORMATION
  Report Type: 
  Country: None (occurrence: None)
  Receive Date: 20041104
  Receipt Date: 20041029
  Transmission Date: 20050328
  Serious: Yes (Other)
  Sender: FDA-Public Use
  Company Number: 003084

PATIENT
  Age: 51 Year
  Sex: Female

DRUGS (4)
  1. ZEBETA [Suspect]
     Indication: HYPERTENSION
     Dosage: 1.00 TABLET, QD, ORAL
     Route: 048
     Dates: start: 20041001
  2. CENTRUM SILVER (ASCORBIC ACID, MINERALS NOS, VITAMINS NOS, VITAMIN B N [Suspect]
     Indication: NUTRITIONAL SUPPORT
     Dosage: 1.00 TABLET, PRN, ORAL
     Route: 048
     Dates: start: 20040101
  3. TOPROL-XL [Suspect]
     Indication: HYPERTENSION
     Dosage: 1.00 TABLET, QD
     Dates: start: 20041001
  4. ZOCOR [Suspect]
     Indication: BLOOD CHOLESTEROL

REACTIONS (2)
  - HYPERSENSITIVITY [None]
  - THROAT TIGHTNESS [None]
